FAERS Safety Report 12975125 (Version 1)
Quarter: 2016Q4

REPORT INFORMATION
  Report Type: Spontaneous
  Country: CA (occurrence: CA)
  Receive Date: 20161125
  Receipt Date: 20161125
  Transmission Date: 20170207
  Serious: Yes (Death, Hospitalization)
  Sender: FDA-Public Use
  Company Number: CA-APOTEX-2016AP014744

PATIENT
  Age: 12 Year
  Sex: Male
  Weight: 25.58 kg

DRUGS (1)
  1. APO-MELOXICAM [Suspect]
     Active Substance: MELOXICAM
     Indication: OSTEOARTHRITIS
     Dosage: 25 KG, QD
     Route: 048
     Dates: start: 20161102, end: 20161110

REACTIONS (4)
  - Gastric ulcer [Unknown]
  - Poisoning [Unknown]
  - Death [Fatal]
  - Renal failure [Unknown]

NARRATIVE: CASE EVENT DATE: 20161110
